FAERS Safety Report 11409280 (Version 1)
Quarter: 2015Q3

REPORT INFORMATION
  Report Type: Spontaneous
  Country: JP (occurrence: None)
  Receive Date: 20150820
  Receipt Date: 20150820
  Transmission Date: 20151125
  Serious: Yes (Hospitalization)
  Sender: FDA-Public Use
  Company Number: JP-2015INT000500

PATIENT
  Age: 70 Year
  Sex: Female

DRUGS (4)
  1. CYCLOPHOSPHAMIDE (CYCLOPHOSPHAMIDE) [Suspect]
     Active Substance: CYCLOPHOSPHAMIDE
     Indication: BREAST CANCER
     Dosage: 500 MG/M2, EVERY 3 WEEKS, 4 CYCLES
     Dates: start: 201011
  2. PACLITAXEL (PACLITACEL) UNKNOWN [Suspect]
     Active Substance: PACLITAXEL
     Indication: BREAST CANCER
     Dosage: 12 COURSES
     Dates: start: 201011
  3. EPIRUBICIN (EPIRUBICIN) [Suspect]
     Active Substance: EPIRUBICIN
     Indication: BREAST CANCER
     Dosage: 100 MG/M2, EVERY 3 WEEKS, 4 CYCLES
     Dates: start: 201011
  4. FLUOROURACIL (FLUOROURACIL) [Suspect]
     Active Substance: FLUOROURACIL
     Indication: BREAST CANCER
     Dosage: 500 MG/M2, EVERY 3 WEEKS, 4 CYCLES
     Dates: start: 201011

REACTIONS (8)
  - Hypoproteinaemia [None]
  - Pleural effusion [None]
  - Respiratory failure [None]
  - Pseudomembranous colitis [None]
  - Sinus tachycardia [None]
  - Cardiac failure congestive [None]
  - Arteriospasm coronary [None]
  - Cardiomyopathy [None]

NARRATIVE: CASE EVENT DATE: 201104
